FAERS Safety Report 8445319 (Version 4)
Quarter: 2014Q2

REPORT INFORMATION
  Report Type: Spontaneous
  Country: US (occurrence: US)
  Receive Date: 20120307
  Receipt Date: 20140429
  Transmission Date: 20141212
  Serious: Yes (Other)
  Sender: FDA-Public Use
  Company Number: US-ROCHE-1020265

PATIENT
  Age: 38 Year
  Sex: Male
  Weight: 88.53 kg

DRUGS (1)
  1. ACCUTANE [Suspect]
     Indication: ACNE
     Route: 065
     Dates: start: 198902, end: 198905

REACTIONS (4)
  - Crohn^s disease [Unknown]
  - Inflammatory bowel disease [Unknown]
  - Stress [Unknown]
  - Large intestine polyp [Unknown]
